FAERS Safety Report 4871547-9 (Version None)
Quarter: 2005Q4

REPORT INFORMATION
  Report Type: 
  Country: None (occurrence: None)
  Receive Date: 20051230
  Receipt Date: 20051216
  Transmission Date: 20060501
  Serious: Yes (Hospitalization)
  Sender: FDA-Public Use
  Company Number: DE200512001945

PATIENT
  Age: 84 Year
  Sex: Male

DRUGS (12)
  1. ZYPREXA [Suspect]
     Indication: BIPOLAR I DISORDER
     Dosage: SEE IMAGE
     Dates: start: 20051207, end: 20051208
  2. ZYPREXA [Suspect]
     Indication: MANIA
     Dosage: SEE IMAGE
     Dates: start: 20051207, end: 20051208
  3. ZYPREXA [Suspect]
     Indication: BIPOLAR I DISORDER
     Dosage: SEE IMAGE
     Dates: start: 20051209, end: 20051209
  4. ZYPREXA [Suspect]
     Indication: MANIA
     Dosage: SEE IMAGE
     Dates: start: 20051209, end: 20051209
  5. TAMSULOSIN HCL [Concomitant]
  6. ISOPTIN /GRF/(VERAPAMIL HYDROCHLORIDE) [Concomitant]
  7. ISOPTIN /GRF/ (VERAPAMIL HYDROCHLORIDE) [Concomitant]
  8. QUILONUM (LITHIUM ACETATE) [Concomitant]
  9. FUROSEMIDE [Concomitant]
  10. CAPTOPRIL [Concomitant]
  11. ACETYLSALICYLIC ACID SRT [Concomitant]
  12. MELNEURIN (MELPERENONE HYDROCHLORIDE) [Concomitant]

REACTIONS (4)
  - ATRIAL FIBRILLATION [None]
  - BLOOD PRESSURE DECREASED [None]
  - HEART RATE DECREASED [None]
  - LOSS OF CONSCIOUSNESS [None]
